FAERS Safety Report 7290660-2 (Version None)
Quarter: 2011Q1

REPORT INFORMATION
  Report Type: 
  Country: None (occurrence: None)
  Receive Date: 20110131
  Receipt Date: 20110120
  Transmission Date: 20110831
  Serious: Yes (Death)
  Sender: FDA-Public Use
  Company Number: 2011SP000234

PATIENT
  Age: 38 Year
  Sex: Male

DRUGS (15)
  1. BETA BLOCKING AGENTS [Suspect]
     Dates: end: 20090101
  2. CYCLOBENZAPRINE [Suspect]
     Dates: end: 20090101
  3. BENZODIAZEPINE DERIVATIVES [Suspect]
     Dates: end: 20090101
  4. CITALOPRAM HYDROBROMIDE [Suspect]
     Dates: end: 20090101
  5. PAROXETINE HCL [Suspect]
     Dates: end: 20090101
  6. QUETIAPINE [Suspect]
     Dates: end: 20090101
  7. LUNESTA [Suspect]
     Dosage: ORAL
     Dates: end: 20090101
  8. DICHLORALPHENAZONE W/ ISOMETHEPTENE/PARACETAM [Suspect]
     Dates: end: 20090101
  9. PROCHLORPERAZINE [Suspect]
     Dates: end: 20090101
  10. PHENYTOIN [Suspect]
     Dates: end: 20090101
  11. ZOLPIDEM [Suspect]
     Dates: end: 20090101
  12. METHERGINE [Suspect]
     Dates: end: 20090101
  13. VERAPAMIL [Suspect]
     Dates: end: 20090101
  14. VALPROIC ACID [Suspect]
     Dates: end: 20090101
  15. ACETAMINOPHEN [Suspect]
     Dates: end: 20090101

REACTIONS (1)
  - COMPLETED SUICIDE [None]
